FAERS Safety Report 7766897-2 (Version None)
Quarter: 2011Q3

REPORT INFORMATION
  Report Type: 
  Country: None (occurrence: None)
  Receive Date: 20110922
  Receipt Date: 20110919
  Transmission Date: 20111222
  Serious: No
  Sender: FDA-Public Use
  Company Number: US-PFIZER INC-2011222881

PATIENT
  Sex: Male
  Weight: 68.027 kg

DRUGS (1)
  1. CORDARONE [Suspect]
     Indication: ARRHYTHMIA
     Dosage: UNK
     Dates: end: 20110901

REACTIONS (1)
  - MUSCULAR WEAKNESS [None]
